FAERS Safety Report 5485431-3 (Version None)
Quarter: 2007Q4

REPORT INFORMATION
  Report Type: 
  Country: None (occurrence: None)
  Receive Date: 20071010
  Receipt Date: 20070928
  Transmission Date: 20080405
  Serious: Yes (Hospitalization)
  Sender: FDA-Public Use
  Company Number: 2007BI020841

PATIENT
  Age: 53 Year
  Sex: Female
  Weight: 58.9676 kg

DRUGS (1)
  1. NATALIZUMAB [Suspect]
     Indication: MULTIPLE SCLEROSIS
     Dosage: 300 MG;QM;IV
     Route: 042
     Dates: start: 20070801

REACTIONS (3)
  - ABASIA [None]
  - CONDITION AGGRAVATED [None]
  - MUSCLE SPASTICITY [None]
